FAERS Safety Report 10165482 (Version 1)
Quarter: 2014Q2

REPORT INFORMATION
  Report Type: Spontaneous
  Country: US (occurrence: US)
  Receive Date: 20140510
  Receipt Date: 20140510
  Transmission Date: 20141212
  Serious: No
  Sender: FDA-Public Use
  Company Number: US-BRISTOL-MYERS SQUIBB COMPANY-20513354

PATIENT
  Age: 74 Year
  Sex: Male

DRUGS (4)
  1. BYDUREON [Suspect]
     Route: 058
     Dates: start: 201401
  2. HUMALOG [Suspect]
  3. VICTOZA [Concomitant]
     Dates: end: 20140106
  4. WARFARIN [Concomitant]

REACTIONS (1)
  - Blood glucose fluctuation [None]
